FAERS Safety Report 5761487-5 (Version None)
Quarter: 2008Q2

REPORT INFORMATION
  Report Type: 
  Country: None (occurrence: None)
  Receive Date: 20080606
  Receipt Date: 20080507
  Transmission Date: 20081010
  Serious: Yes (Hospitalization)
  Sender: FDA-Public Use
  Company Number: US-BOEHRINGER INGELHEIM GMBH, GERMANY-2007-BP-23816BP

PATIENT
  Sex: Male
  Weight: 76 kg

DRUGS (57)
  1. MIRAPEX [Suspect]
     Indication: PARKINSON'S DISEASE
     Dates: start: 19970903, end: 20070801
  2. NEUPRO [Concomitant]
     Indication: PARKINSON'S DISEASE
  3. COMTAN [Concomitant]
     Indication: PARKINSON'S DISEASE
  4. AMANTADINE HCL [Concomitant]
  5. CARBIDOPA LEVIDOPA [Concomitant]
     Indication: PARKINSON'S DISEASE
  6. AZILECT [Concomitant]
     Indication: PARKINSON'S DISEASE
  7. ZOCOR [Concomitant]
     Indication: BLOOD CHOLESTEROL INCREASED
  8. ARTHROTEC [Concomitant]
  9. DIPYRIDAMOLE [Concomitant]
  10. BECLOMETHASONE DIPROPIONATE [Concomitant]
  11. NITROGLYCERIN [Concomitant]
  12. NITROGLYCERIN [Concomitant]
  13. ELDEPRUL [Concomitant]
  14. HYDROCORTISONE/PRAMOXINE [Concomitant]
  15. SERTRALINE [Concomitant]
  16. ASPIRIN [Concomitant]
  17. PIROXICAM [Concomitant]
  18. AZITHROMYCIN [Concomitant]
  19. FEXOFENADINE [Concomitant]
  20. SINEMET CR [Concomitant]
  21. FLUNISOLIDE [Concomitant]
  22. ACETAMINOPHEN [Concomitant]
  23. AMOXICILLIN [Concomitant]
  24. CAPSAICIN [Concomitant]
  25. ZOLOFT [Concomitant]
  26. BUPROPION HCL [Concomitant]
  27. DICLOFENAC SODIUM [Concomitant]
  28. PRIMIDONE [Concomitant]
  29. OMEPRAZOLE [Concomitant]
  30. LORATADINE [Concomitant]
  31. AMITRIPTYLINE HCL [Concomitant]
  32. VARDENAFIL [Concomitant]
  33. HYDROCODONE [Concomitant]
  34. CEPHALEXIN [Concomitant]
  35. WELLBUTRIN [Concomitant]
  36. ULTRACET [Concomitant]
  37. VIOXX [Concomitant]
  38. MARGESIC [Concomitant]
  39. METHYLPREDNISOLONE [Concomitant]
  40. ZETIA [Concomitant]
  41. NYSTATIN [Concomitant]
  42. NEURONTIN [Concomitant]
  43. VIAGRA [Concomitant]
  44. VICOPROFEN [Concomitant]
  45. METHOCARBAM [Concomitant]
  46. SMZ-TMP DS [Concomitant]
  47. HYOSCYAMINE [Concomitant]
  48. NAPROXEN [Concomitant]
  49. MELOXICAM [Concomitant]
  50. PRIMIDONE [Concomitant]
  51. CAPSAZEN CREAM [Concomitant]
  52. ALLERGY SINUS [Concomitant]
  53. IBUROFEN [Concomitant]
  54. VITAMINS [Concomitant]
  55. PRILOSEC [Concomitant]
  56. LUNESTA [Concomitant]
  57. ARICEPT [Concomitant]

REACTIONS (5)
  - HYPERPHAGIA [None]
  - HYPERSEXUALITY [None]
  - OBSESSIVE-COMPULSIVE DISORDER [None]
  - PATHOLOGICAL GAMBLING [None]
  - WEIGHT INCREASED [None]
